FAERS Safety Report 10204570 (Version 1)
Quarter: 2014Q2

REPORT INFORMATION
  Report Type: Spontaneous
  Country: US (occurrence: None)
  Receive Date: 20140527
  Receipt Date: 20140527
  Transmission Date: 20141212
  Serious: Yes (Life-Threatening, Disabling, Other)
  Sender: FDA-Public Use
  Company Number: None

PATIENT
  Age: 63 Year
  Sex: Female
  Weight: 66.68 kg

DRUGS (3)
  1. DERMA SMOOTH SCALP OIL 0.01% [Suspect]
     Indication: SKIN EXFOLIATION
     Dosage: LEAVE ON 8 HOURS 2TIMES WEEK, TWICE A WEEK, SCALP
     Dates: start: 20120705, end: 20140101
  2. DERMA SMOOTH SCALP OIL 0.01% [Suspect]
     Indication: DRY SKIN
     Dosage: LEAVE ON 8 HOURS 2TIMES WEEK, TWICE A WEEK, SCALP
     Dates: start: 20120705, end: 20140101
  3. FLOUCINONIDE [Suspect]
     Indication: DRY SKIN
     Dosage: SOLUTION 2 TIMES, TWICE DAILY, APPLIED TO A SURFACE, USUALLY THE SKIN
     Dates: start: 20140101

REACTIONS (6)
  - Asthenia [None]
  - Vitamin D deficiency [None]
  - Blood corticotrophin decreased [None]
  - Blood cortisol decreased [None]
  - Urinary tract disorder [None]
  - Impaired healing [None]
